FAERS Safety Report 4286832-1 (Version None)
Quarter: 2004Q1

REPORT INFORMATION
  Report Type: 
  Country: None (occurrence: None)
  Receive Date: 20040204
  Receipt Date: 20040121
  Transmission Date: 20041129
  Serious: Yes (Hospitalization, Other)
  Sender: FDA-Public Use
  Company Number: 03-340-0092-1

PATIENT
  Age: 50 Year
  Sex: Male

DRUGS (1)
  1. DOXORUBICIN, UNKNOWN STRENGTH, PHARMACIA [Suspect]
     Indication: HEPATIC NEOPLASM MALIGNANT
     Dosage: 60 MG/M2 IV EVERY 3 WK
     Route: 042
     Dates: start: 20030506, end: 20031028

REACTIONS (6)
  - ABDOMINAL DISTENSION [None]
  - CARDIAC FAILURE CONGESTIVE [None]
  - FEBRILE NEUTROPENIA [None]
  - HYPOTENSION [None]
  - OEDEMA PERIPHERAL [None]
  - SCROTAL OEDEMA [None]
